FAERS Safety Report 14891642 (Version 1)
Quarter: 2018Q2

REPORT INFORMATION
  Report Type: Spontaneous
  Country: CN (occurrence: CN)
  Receive Date: 20180514
  Receipt Date: 20180514
  Transmission Date: 20180711
  Serious: Yes (Other)
  Sender: FDA-Public Use
  Company Number: CN-BAYER-2018-089904

PATIENT

DRUGS (2)
  1. ULTRAVIST [Suspect]
     Active Substance: IOPROMIDE
     Indication: COMPUTERISED TOMOGRAM
  2. ULTRAVIST [Suspect]
     Active Substance: IOPROMIDE
     Indication: ARTERIOGRAM CORONARY
     Dosage: UNK, ONCE

REACTIONS (12)
  - Apallic syndrome [Not Recovered/Not Resolved]
  - Foaming at mouth [None]
  - Blood pressure immeasurable [None]
  - Hypersensitivity [None]
  - Brain injury [None]
  - Cardiovascular insufficiency [None]
  - Seizure [None]
  - Discomfort [None]
  - Erythema [None]
  - Nausea [None]
  - Palpitations [None]
  - Respiratory depression [None]
